FAERS Safety Report 20793732 (Version 4)
Quarter: 2022Q2

REPORT INFORMATION
  Report Type: Spontaneous
  Country: CA (occurrence: CA)
  Receive Date: 20220506
  Receipt Date: 20220607
  Transmission Date: 20220721
  Serious: Yes (Hospitalization)
  Sender: FDA-Public Use
  Company Number: CA-CELLTRION INC.-2021CA018983

PATIENT

DRUGS (7)
  1. INFLECTRA [Suspect]
     Active Substance: INFLIXIMAB-DYYB
     Indication: Psoriatic arthropathy
     Dosage: 605 MG (EVERY 5 WEEKS ROUND DOSE TO NEAREST HUNDRED)
     Route: 042
     Dates: start: 20211103
  2. INFLECTRA [Suspect]
     Active Substance: INFLIXIMAB-DYYB
     Dosage: 605 MG (EVERY 5 WEEKS ROUND DOSE TO NEAREST HUNDRED)
     Route: 042
     Dates: start: 20211208
  3. INFLECTRA [Suspect]
     Active Substance: INFLIXIMAB-DYYB
     Dosage: 605 MG (EVERY 5 WEEKS ROUND DOSE TO NEAREST HUNDRED)
     Route: 042
     Dates: start: 20220112
  4. INFLECTRA [Suspect]
     Active Substance: INFLIXIMAB-DYYB
     Dosage: 605 MG (EVERY 5 WEEKS ROUND DOSE TO NEAREST HUNDRED)
     Route: 042
     Dates: start: 20220216
  5. INFLECTRA [Suspect]
     Active Substance: INFLIXIMAB-DYYB
     Dosage: 605 MG (EVERY 5 WEEKS ROUND DOSE TO NEAREST HUNDRED)
     Route: 042
     Dates: start: 20220323
  6. INFLECTRA [Suspect]
     Active Substance: INFLIXIMAB-DYYB
     Dosage: 605 MG (EVERY 5 WEEKS ROUND DOSE TO NEAREST HUNDRED)
     Route: 042
     Dates: start: 20220510
  7. METHOTREXATE [Concomitant]
     Active Substance: METHOTREXATE
     Dosage: 25 MG, WEEKLY
     Route: 058

REACTIONS (8)
  - COVID-19 [Recovered/Resolved]
  - Off label use [Unknown]
  - Inappropriate schedule of product administration [Unknown]
  - Hypertension [Not Recovered/Not Resolved]
  - Body temperature decreased [Not Recovered/Not Resolved]
  - Weight increased [Unknown]
  - Metabolic disorder [Unknown]
  - Thyroid disorder [Unknown]

NARRATIVE: CASE EVENT DATE: 20211103
